FAERS Safety Report 7090304-9 (Version None)
Quarter: 2010Q4

REPORT INFORMATION
  Report Type: 
  Country: None (occurrence: None)
  Receive Date: 20101109
  Receipt Date: 20101026
  Transmission Date: 20110411
  Serious: Yes (Other)
  Sender: FDA-Public Use
  Company Number: US-JNJFOC-20101100180

PATIENT
  Age: 41 Year
  Sex: Female
  Weight: 102.06 kg

DRUGS (1)
  1. TYLENOL ALLERGY MULTI-SYMPTOM [Suspect]
     Indication: HYPERSENSITIVITY

REACTIONS (1)
  - DYSPNOEA [None]
